FAERS Safety Report 6933809-0 (Version None)
Quarter: 2010Q3

REPORT INFORMATION
  Report Type: 
  Country: None (occurrence: None)
  Receive Date: 20100820
  Receipt Date: 20100727
  Transmission Date: 20110219
  Serious: Yes (Other)
  Sender: FDA-Public Use
  Company Number: SA-ASTRAZENECA-2010SE38136

PATIENT
  Age: 4105 Day
  Sex: Female
  Weight: 53 kg

DRUGS (1)
  1. SYMBICORT [Suspect]
     Indication: ASTHMA
     Dosage: 160/4.5 UG
     Route: 055
     Dates: start: 20091014, end: 20100417

REACTIONS (2)
  - DYSPNOEA [None]
  - PALPITATIONS [None]
